FAERS Safety Report 10221486 (Version 2)
Quarter: 2014Q2

REPORT INFORMATION
  Report Type: Report from Study
  Country: US (occurrence: US)
  Receive Date: 20140606
  Receipt Date: 20140620
  Transmission Date: 20141212
  Serious: Yes (Hospitalization)
  Sender: FDA-Public Use
  Company Number: US-PFIZER INC-2014146309

PATIENT
  Age: 63 Year
  Sex: Male
  Weight: 104 kg

DRUGS (14)
  1. CRIZOTINIB [Suspect]
     Indication: HEPATIC CANCER
     Dosage: 250 MG, 2X/DAY
     Route: 048
     Dates: start: 20140515, end: 20140526
  2. COLECALCIFEROL [Concomitant]
     Dosage: 2000 MG, 2 TIMES DAILY
     Route: 048
  3. METOPROLOL [Concomitant]
     Indication: HYPERTENSION
     Dosage: 100 MG; REGIMEN: 50 MG, 2 TIMES DAILY
     Route: 048
  4. METOPROLOL [Concomitant]
     Dosage: 100 MG, UNK
     Route: 048
  5. OMEPRAZOLE MAGNESIUM [Concomitant]
     Dosage: 20 MG, DAILY AS NEEDED
     Route: 048
  6. OXYCODONE [Concomitant]
     Indication: PAIN
     Dosage: 5 MG; 1-2 TABLETS EVERY 4 HRS AS NEEDED
     Route: 048
  7. LORAZEPAM [Concomitant]
     Indication: NAUSEA
     Dosage: 1 MG; REGIMEN: 1 TABLET/ 6 HRS AS NEEDED
     Route: 048
  8. ASPIRIN [Concomitant]
     Dosage: 81 MG, ONCE DAILY
     Route: 048
  9. PROCHLORPERAZINE [Concomitant]
     Indication: NAUSEA
     Dosage: 10 MG; 1 DOSE / 6HRS AS NEEDED
     Route: 048
  10. WARFARIN SODIUM [Concomitant]
     Dosage: 2.5 MG/ DAILY
     Route: 048
  11. MACROBID [Concomitant]
     Indication: URINARY TRACT INFECTION
     Dosage: 100 MG CAP; REGIMEN: 1 CAP TWICE DAILY
     Route: 048
     Dates: start: 20140521, end: 20140523
  12. LOMOTIL [Concomitant]
     Indication: DIARRHOEA
     Dosage: UNK
     Route: 048
  13. TRAMADOL [Concomitant]
     Indication: PAIN
     Dosage: 50 MG, UNK
     Route: 048
  14. KEFLEX [Concomitant]
     Indication: SOFT TISSUE INFECTION
     Dosage: UNK
     Route: 048
     Dates: start: 20140523, end: 20140526

REACTIONS (1)
  - Sepsis [Recovered/Resolved]
